FAERS Safety Report 6748504-0 (Version None)
Quarter: 2010Q2

REPORT INFORMATION
  Report Type: 
  Country: None (occurrence: None)
  Receive Date: 20100527
  Receipt Date: 20100527
  Transmission Date: 20101027
  Serious: Yes (Other)
  Sender: FDA-Public Use
  Company Number: None

PATIENT
  Age: 47 Year
  Sex: Female
  Weight: 65.7716 kg

DRUGS (1)
  1. NUVARING [Suspect]
     Dosage: AS DIRECTED
     Dates: start: 20100316, end: 20100521

REACTIONS (6)
  - CLUSTER HEADACHE [None]
  - LACRIMATION INCREASED [None]
  - MIDDLE INSOMNIA [None]
  - MIGRAINE [None]
  - NAUSEA [None]
  - PHOTOPHOBIA [None]
